FAERS Safety Report 19285484 (Version 1)
Quarter: 2021Q2

REPORT INFORMATION
  Report Type: Spontaneous
  Country: GB (occurrence: GB)
  Receive Date: 20210521
  Receipt Date: 20210521
  Transmission Date: 20210717
  Serious: Yes (Death, Hospitalization, Other)
  Sender: FDA-Public Use
  Company Number: GB-MYLANLABS-2021M1029881

PATIENT
  Age: 72 Year

DRUGS (3)
  1. ATORVASTATIN [Suspect]
     Active Substance: ATORVASTATIN
     Indication: PRODUCT USED FOR UNKNOWN INDICATION
     Dosage: UNK
  2. FUSIDIC ACID [Interacting]
     Active Substance: FUSIDIC ACID
     Indication: OSTEOMYELITIS
     Dosage: 750 MILLIGRAM, BID
  3. FLUCLOXACILLIN [Concomitant]
     Active Substance: FLUCLOXACILLIN
     Indication: OSTEOMYELITIS
     Dosage: UNK

REACTIONS (2)
  - Rhabdomyolysis [Fatal]
  - Labelled drug-drug interaction medication error [Unknown]
